FAERS Safety Report 10753756 (Version 1)
Quarter: 2015Q1

REPORT INFORMATION
  Report Type: Report from Study
  Country: JP (occurrence: JP)
  Receive Date: 20150201
  Receipt Date: 20150201
  Transmission Date: 20150721
  Serious: Yes (Other)
  Sender: FDA-Public Use
  Company Number: JP-MYLANLABS-2015M1002291

PATIENT

DRUGS (3)
  1. AMANTADINE [Concomitant]
     Active Substance: AMANTADINE
     Indication: MAJOR DEPRESSION
     Route: 065
  2. SETIPTILINE [Concomitant]
     Active Substance: SETIPTILINE
     Route: 048
  3. CLONAZEPAM. [Suspect]
     Active Substance: CLONAZEPAM
     Indication: MAJOR DEPRESSION
     Route: 065

REACTIONS (1)
  - Neuroleptic malignant syndrome [Recovered/Resolved]
